FAERS Safety Report 10263464 (Version 2)
Quarter: 2014Q2

REPORT INFORMATION
  Report Type: Report from Study
  Country: US (occurrence: US)
  Receive Date: 20140626
  Receipt Date: 20140626
  Transmission Date: 20141212
  Serious: Yes (Hospitalization, Other)
  Sender: FDA-Public Use
  Company Number: US-MYLANLABS-2014S1014649

PATIENT
  Age: 63 Year
  Sex: Female

DRUGS (15)
  1. CLOZAPINE TABLETS [Suspect]
     Route: 048
  2. CLOZAPINE TABLETS [Suspect]
     Route: 048
  3. CLOZAPINE TABLETS [Suspect]
     Route: 048
  4. LITHIUM [Concomitant]
  5. NAMENDA [Concomitant]
  6. LOPRESSOR [Concomitant]
  7. ZYPREXA [Concomitant]
  8. ASPIRIN [Concomitant]
  9. BENZTROPINE [Concomitant]
  10. DOCUSATE [Concomitant]
  11. VITAMIN D [Concomitant]
  12. LISINOPRIL [Concomitant]
  13. PRILOSEC [Concomitant]
     Dosage: BEFORE BREAKFAST
  14. TRAZODONE [Concomitant]
  15. JANUVIA [Concomitant]

REACTIONS (5)
  - Convulsion [Recovered/Resolved]
  - Loss of consciousness [Recovered/Resolved]
  - Impulsive behaviour [Not Recovered/Not Resolved]
  - Abnormal behaviour [Not Recovered/Not Resolved]
  - Hypotension [Not Recovered/Not Resolved]
